FAERS Safety Report 15542104 (Version 1)
Quarter: 2018Q4

REPORT INFORMATION
  Report Type: Spontaneous
  Country: PL (occurrence: PL)
  Receive Date: 20181023
  Receipt Date: 20181023
  Transmission Date: 20190205
  Serious: Yes (Other)
  Sender: FDA-Public Use
  Company Number: PL-MACLEODS PHARMACEUTICALS US LTD-MAC2018018039

PATIENT

DRUGS (1)
  1. METFORMIN HYDROCHLORIDE. [Suspect]
     Active Substance: METFORMIN HYDROCHLORIDE
     Indication: PRODUCT USED FOR UNKNOWN INDICATION
     Dosage: 850 MILLIGRAM, BID
     Route: 065

REACTIONS (2)
  - Insulin resistance [Unknown]
  - Condition aggravated [Unknown]
